FAERS Safety Report 9537822 (Version 1)
Quarter: 2013Q3

REPORT INFORMATION
  Report Type: Spontaneous
  Country: FR (occurrence: FR)
  Receive Date: 20130919
  Receipt Date: 20130919
  Transmission Date: 20140515
  Serious: Yes (Hospitalization)
  Sender: FDA-Public Use
  Company Number: PHHY2013FR104267

PATIENT
  Age: 78 Year
  Sex: Female

DRUGS (4)
  1. ACLASTA [Suspect]
     Dosage: 5 MG, ONCE
     Route: 042
     Dates: start: 20110930
  2. ROCEPHINE [Suspect]
     Indication: LUNG INFECTION
     Dosage: 2 G, QD (EVERY 24 HOUR)
     Route: 042
     Dates: start: 20110921, end: 20111003
  3. BACTRIM [Suspect]
     Indication: PNEUMOCYSTIS JIROVECII PNEUMONIA
     Dosage: 4 DF, UNK
     Route: 042
     Dates: start: 20110922, end: 20111003
  4. ZELITREX [Suspect]
     Indication: ORAL HERPES
     Dosage: 500 MG, QD
     Route: 048
     Dates: start: 20110929, end: 20111003

REACTIONS (1)
  - Thrombocytopenia [Recovered/Resolved]
